FAERS Safety Report 7426250-8 (Version None)
Quarter: 2011Q2

REPORT INFORMATION
  Report Type: 
  Country: None (occurrence: None)
  Receive Date: 20110420
  Receipt Date: 20101130
  Transmission Date: 20111010
  Serious: Yes (Hospitalization)
  Sender: FDA-Public Use
  Company Number: A0898275A

PATIENT
  Sex: Female

DRUGS (1)
  1. AVANDIA [Suspect]
     Indication: DIABETES MELLITUS
     Route: 048

REACTIONS (5)
  - MYOCARDIAL INFARCTION [None]
  - BLOOD PRESSURE ABNORMAL [None]
  - HEART RATE IRREGULAR [None]
  - VASCULAR GRAFT [None]
  - BLOOD GLUCOSE DECREASED [None]
